FAERS Safety Report 9132380 (Version 2)
Quarter: 2013Q1

REPORT INFORMATION
  Report Type: Report from Study
  Country: US (occurrence: US)
  Receive Date: 20130301
  Receipt Date: 20130308
  Transmission Date: 20140127
  Serious: Yes (Other)
  Sender: FDA-Public Use
  Company Number: US-BAYER-2013-022679

PATIENT
  Age: 53 Year
  Sex: Female

DRUGS (4)
  1. NEXAVAR [Suspect]
     Indication: HEPATIC CANCER
     Dosage: 400 MG, BID
     Route: 048
     Dates: start: 201212, end: 20130212
  2. NEXAVAR [Suspect]
     Indication: HEPATIC CANCER
     Dosage: ^ONE CAPSULE IN EVENING^
     Route: 048
     Dates: start: 20130218, end: 20130218
  3. NEXAVAR [Suspect]
     Indication: HEPATIC CANCER
     Dosage: 200 MG, BID FOR 2 WEEKS + MD WILL REEVALUATE
     Route: 048
     Dates: start: 20130219
  4. ACIPHEX [Concomitant]
     Dosage: UNK

REACTIONS (5)
  - Diarrhoea [Recovering/Resolving]
  - Rash generalised [Recovering/Resolving]
  - Blister [Recovering/Resolving]
  - Gastrointestinal ulcer [Recovering/Resolving]
  - Oral mucosal blistering [Recovering/Resolving]
